FAERS Safety Report 19880136 (Version 1)
Quarter: 2021Q3

REPORT INFORMATION
  Report Type: Spontaneous
  Country: US (occurrence: US)
  Receive Date: 20210924
  Receipt Date: 20210924
  Transmission Date: 20211014
  Serious: Yes (Other)
  Sender: FDA-Public Use
  Company Number: US-PFIZER INC-202101239662

PATIENT
  Sex: Female

DRUGS (1)
  1. FLAGYL [Suspect]
     Active Substance: METRONIDAZOLE\METRONIDAZOLE HYDROCHLORIDE
     Dosage: UNK

REACTIONS (6)
  - Heart rate increased [Unknown]
  - Exposure to contaminated air [Unknown]
  - Neuropathy peripheral [Unknown]
  - Dizziness [Unknown]
  - Agitation [Unknown]
  - Headache [Unknown]

NARRATIVE: CASE EVENT DATE: 2018
